FAERS Safety Report 8645960 (Version 2)
Quarter: 2012Q4

REPORT INFORMATION
  Report Type: 
  Country: US (occurrence: US)
  Receive Date: 20120702
  Receipt Date: 20120905
  Transmission Date: 20130627
  Serious: Yes (Other)
  Sender: FDA-Public Use
  Company Number: US-ASTRAZENECA-2012SE02315

PATIENT
  Age: 58 Year
  Sex: Female

DRUGS (1)
  1. SEROQUEL [Suspect]
     Indication: BIPOLAR DISORDER
     Route: 048

REACTIONS (10)
  - Suicidal ideation [Unknown]
  - Bipolar disorder [Unknown]
  - Feeling abnormal [Unknown]
  - Nervousness [Unknown]
  - Malaise [Unknown]
  - Herpes zoster [Unknown]
  - Gastric disorder [Unknown]
  - Frustration [Unknown]
  - Fatigue [Unknown]
  - Drug ineffective [Unknown]
